FAERS Safety Report 13302769 (Version 2)
Quarter: 2017Q1

REPORT INFORMATION
  Report Type: Report from Study
  Country: JP (occurrence: JP)
  Receive Date: 20170307
  Receipt Date: 20170315
  Transmission Date: 20170428
  Serious: Yes (Other)
  Sender: FDA-Public Use
  Company Number: JP-JNJFOC-20170302359

PATIENT
  Sex: Female

DRUGS (6)
  1. DOXORUBICIN HYDROCHLORIDE. [Suspect]
     Active Substance: DOXORUBICIN HYDROCHLORIDE
     Indication: BREAST CANCER
     Route: 042
  2. DOXORUBICIN HYDROCHLORIDE. [Suspect]
     Active Substance: DOXORUBICIN HYDROCHLORIDE
     Indication: BREAST CANCER
     Route: 042
  3. PACLITAXEL. [Suspect]
     Active Substance: PACLITAXEL
     Indication: BREAST CANCER
     Route: 042
  4. PACLITAXEL. [Suspect]
     Active Substance: PACLITAXEL
     Indication: BREAST CANCER
     Route: 042
  5. DOCETAXEL. [Suspect]
     Active Substance: DOCETAXEL
     Indication: BREAST CANCER
     Route: 042
  6. CYCLOPHOSPHAMIDE. [Suspect]
     Active Substance: CYCLOPHOSPHAMIDE
     Indication: BREAST CANCER
     Route: 042

REACTIONS (26)
  - Febrile neutropenia [Unknown]
  - Skin exfoliation [Unknown]
  - Micturition urgency [Unknown]
  - Thrombocytopenia [Unknown]
  - Alanine aminotransferase increased [Unknown]
  - Diarrhoea [Unknown]
  - Arthralgia [Unknown]
  - Myalgia [Unknown]
  - Metastasis [Unknown]
  - Leukopenia [Unknown]
  - Nausea [Unknown]
  - Constipation [Unknown]
  - Rash [Unknown]
  - Peripheral sensory neuropathy [Unknown]
  - Neutropenia [Unknown]
  - Aspartate aminotransferase increased [Unknown]
  - Peripheral motor neuropathy [Unknown]
  - Oedema [Unknown]
  - Stomatitis [Unknown]
  - Vomiting [Unknown]
  - Haematuria [Unknown]
  - Anaemia [Unknown]
  - Blood bilirubin increased [Unknown]
  - Arrhythmia [Unknown]
  - Endometrial cancer [Unknown]
  - Fatigue [Unknown]
